FAERS Safety Report 19377894 (Version 1)
Quarter: 2021Q2

REPORT INFORMATION
  Report Type: Spontaneous
  Country: FR (occurrence: FR)
  Receive Date: 20210605
  Receipt Date: 20210605
  Transmission Date: 20210717
  Serious: Yes (Hospitalization)
  Sender: FDA-Public Use
  Company Number: NVSC2021FR122210

PATIENT
  Age: 91 Year
  Sex: Female

DRUGS (6)
  1. TAREG [Suspect]
     Active Substance: VALSARTAN
     Dosage: 160 MG, QD ((1 DOSE OF 160 MG DAILY IN THE MORNING))
     Route: 065
  2. TAREG [Suspect]
     Active Substance: VALSARTAN
     Indication: HYPERTENSION
     Dosage: 40 MG
     Route: 065
     Dates: start: 202102
  3. ELIQUIS [Concomitant]
     Active Substance: APIXABAN
     Indication: PRODUCT USED FOR UNKNOWN INDICATION
     Dosage: UNK
     Route: 065
  4. DOLIPRANE [Concomitant]
     Active Substance: ACETAMINOPHEN
     Indication: PRODUCT USED FOR UNKNOWN INDICATION
     Dosage: UNK
     Route: 065
  5. SOTALOL. [Concomitant]
     Active Substance: SOTALOL
     Indication: PRODUCT USED FOR UNKNOWN INDICATION
     Dosage: 80 MG
     Route: 065
  6. LOXEN [Concomitant]
     Indication: HYPERTENSIVE CRISIS
     Dosage: 20 MG (OCCASIONALLY)
     Route: 065

REACTIONS (5)
  - Back pain [Unknown]
  - Pain [Unknown]
  - Muscle atrophy [Unknown]
  - Pancreatitis [Unknown]
  - Fatigue [Unknown]

NARRATIVE: CASE EVENT DATE: 20210524
